FAERS Safety Report 5904716-7 (Version None)
Quarter: 2008Q3

REPORT INFORMATION
  Report Type: 
  Country: None (occurrence: None)
  Receive Date: 20080909
  Receipt Date: 20080711
  Transmission Date: 20090109
  Serious: Yes (Other)
  Sender: FDA-Public Use
  Company Number: 163-20785-08050126

PATIENT
  Age: 78 Year
  Sex: Male

DRUGS (5)
  1. THALOMID [Suspect]
     Indication: MULTIPLE MYELOMA
     Dosage: 100 MG, 1 IN 1 D, ORAL ; 50 MG, 1 IN 1 D, ORAL
     Route: 048
     Dates: start: 20080317, end: 20080417
  2. THALOMID [Suspect]
     Indication: MULTIPLE MYELOMA
     Dosage: 100 MG, 1 IN 1 D, ORAL ; 50 MG, 1 IN 1 D, ORAL
     Route: 048
     Dates: start: 20080429
  3. DEXAMETHASONE TAB [Suspect]
     Indication: MULTIPLE MYELOMA
  4. ASPIRIN [Concomitant]
  5. VELCADE [Concomitant]

REACTIONS (4)
  - ABDOMINAL DISTENSION [None]
  - CONSTIPATION [None]
  - DYSPNOEA [None]
  - PULMONARY EMBOLISM [None]
